FAERS Safety Report 24749483 (Version 1)
Quarter: 2024Q4

REPORT INFORMATION
  Report Type: Spontaneous
  Country: GB (occurrence: GB)
  Receive Date: 20241218
  Receipt Date: 20241218
  Transmission Date: 20250115
  Serious: Yes (Hospitalization, Other)
  Sender: ELI LILLY AND COMPANY
  Company Number: None

PATIENT
  Age: 33 Year
  Sex: Female
  Weight: 92 kg

DRUGS (1)
  1. MOUNJARO [Suspect]
     Active Substance: TIRZEPATIDE
     Indication: Weight control
     Dosage: UNK UNK, UNKNOWN
     Route: 065
     Dates: end: 20241208

REACTIONS (10)
  - Gastritis [Recovering/Resolving]
  - Dyspnoea [Unknown]
  - Muscle spasms [Unknown]
  - Feeling abnormal [Unknown]
  - Back pain [Unknown]
  - Vomiting [Recovered/Resolved]
  - Diarrhoea [Recovered/Resolved]
  - Abdominal pain upper [Unknown]
  - Nausea [Unknown]
  - Blood phosphorus decreased [Unknown]

NARRATIVE: CASE EVENT DATE: 20241029
